FAERS Safety Report 7267799-0 (Version None)
Quarter: 2011Q1

REPORT INFORMATION
  Report Type: 
  Country: None (occurrence: None)
  Receive Date: 20110201
  Receipt Date: 20110126
  Transmission Date: 20110831
  Serious: Yes (Other)
  Sender: FDA-Public Use
  Company Number: A0910355A

PATIENT

DRUGS (1)
  1. ADVAIR [Suspect]
     Route: 065

REACTIONS (2)
  - RENAL FAILURE [None]
  - HYPERKALAEMIA [None]
